FAERS Safety Report 14861497 (Version 1)
Quarter: 2018Q2

REPORT INFORMATION
  Report Type: Report from Study
  Country: None (occurrence: ES)
  Receive Date: 20180508
  Receipt Date: 20180508
  Transmission Date: 20180711
  Serious: Yes (Hospitalization)
  Sender: FDA-Public Use
  Company Number: ES-ABBVIE-18S-144-2346404-00

PATIENT
  Age: 53 Year
  Sex: Male

DRUGS (5)
  1. PRAVASTATINA SODICA (7192SO) [Concomitant]
     Indication: DYSLIPIDAEMIA
     Route: 048
     Dates: start: 2013
  2. OMACOR [Concomitant]
     Active Substance: OMEGA-3-ACID ETHYL ESTERS
     Indication: HYPERTRIGLYCERIDAEMIA
     Dosage: 1000 MG CAPSULAS BLANDAS , 28 C?PSULAS
     Route: 048
     Dates: start: 2013, end: 20170406
  3. CEMIDON [Suspect]
     Active Substance: ISONIAZID
     Indication: TUBERCULOSIS
     Dosage: 300 B6, 30 COMPRIMIDOS
     Route: 048
     Dates: start: 201701
  4. PREZISTA [Suspect]
     Active Substance: DARUNAVIR ETHANOLATE
     Indication: HIV ANTIBODY POSITIVE
     Dosage: 75 MG COMPRIMIDOS RECUBIERTOS CON PELICULA, 480 COMPRIMIDOS
     Route: 048
     Dates: start: 2013
  5. NORVIR [Suspect]
     Active Substance: RITONAVIR
     Indication: HIV ANTIGEN POSITIVE
     Dosage: 100 MG COMPRIMIDOS RECUBIERTOS CON PELICULA, 30 COMPRIMIDOS
     Route: 048
     Dates: start: 2013

REACTIONS (1)
  - Mixed liver injury [Recovering/Resolving]

NARRATIVE: CASE EVENT DATE: 20170402
